FAERS Safety Report 8094905-0 (Version None)
Quarter: 2012Q1

REPORT INFORMATION
  Report Type: 
  Country: None (occurrence: None)
  Receive Date: 20120130
  Receipt Date: 20120120
  Transmission Date: 20120608
  Serious: No
  Sender: FDA-Public Use
  Company Number: US-BIOGENIDEC-2012BI002531

PATIENT
  Age: 18 Year
  Sex: Female

DRUGS (1)
  1. TYSABRI [Suspect]
     Indication: MULTIPLE SCLEROSIS
     Route: 042
     Dates: start: 20120105

REACTIONS (8)
  - PAIN IN EXTREMITY [None]
  - BALANCE DISORDER [None]
  - SENSORY LOSS [None]
  - MUSCLE SPASMS [None]
  - VISION BLURRED [None]
  - DYSPHAGIA [None]
  - BLEPHAROSPASM [None]
  - EYE PAIN [None]
